FAERS Safety Report 4553924-9 (Version None)
Quarter: 2005Q1

REPORT INFORMATION
  Report Type: 
  Country: None (occurrence: None)
  Receive Date: 20050113
  Receipt Date: 20050113
  Transmission Date: 20050727
  Serious: Yes (Life-Threatening, Hospitalization, Other)
  Sender: FDA-Public Use
  Company Number: None

PATIENT
  Age: 55 Year
  Sex: Female
  Weight: 90.7 kg

DRUGS (8)
  1. LISINOPRIL [Suspect]
     Dosage: 10 MG DAILY/CHRONIC
  2. NAPRASYN [Concomitant]
  3. DIGOXIN [Concomitant]
  4. ALBUTEROL [Concomitant]
  5. COREG [Concomitant]
  6. PLAVIX [Concomitant]
  7. LASIX [Concomitant]
  8. NORVASC [Concomitant]

REACTIONS (6)
  - DROOLING [None]
  - DYSKINESIA [None]
  - DYSPHAGIA [None]
  - OBSTRUCTIVE AIRWAYS DISORDER [None]
  - OROPHARYNGEAL SWELLING [None]
  - SWOLLEN TONGUE [None]
